FAERS Safety Report 9175469 (Version 5)
Quarter: 2013Q4

REPORT INFORMATION
  Report Type: Spontaneous
  Country: US (occurrence: US)
  Receive Date: 20130320
  Receipt Date: 20131126
  Transmission Date: 20140711
  Serious: No
  Sender: FDA-Public Use
  Company Number: US-PFIZER INC-2013091848

PATIENT
  Age: 69 Year
  Sex: Female

DRUGS (2)
  1. XELJANZ [Suspect]
     Indication: RHEUMATOID ARTHRITIS
     Dosage: 5 MG, 2X/DAY
     Route: 048
     Dates: start: 20130112
  2. XELJANZ [Suspect]
     Dosage: 5 MG, 2X/DAY (1 TABLET)
     Route: 048
     Dates: end: 20131007

REACTIONS (3)
  - Platelet count decreased [Unknown]
  - Cough [Unknown]
  - Nasopharyngitis [Unknown]
